FAERS Safety Report 9550410 (Version 5)
Quarter: 2015Q4

REPORT INFORMATION
  Report Type: Report from Study
  Country: US (occurrence: US)
  Receive Date: 20130924
  Receipt Date: 20151216
  Transmission Date: 20160305
  Serious: Yes (Hospitalization)
  Sender: FDA-Public Use
  Company Number: US-SANOFI-AVENTIS-2013SA076476

PATIENT
  Age: 56 Year
  Sex: Female

DRUGS (2)
  1. AUBAGIO [Suspect]
     Active Substance: TERIFLUNOMIDE
     Indication: MULTIPLE SCLEROSIS
     Route: 048
  2. AUBAGIO [Suspect]
     Active Substance: TERIFLUNOMIDE
     Indication: MULTIPLE SCLEROSIS
     Dosage: TAKEN TO- TWO WEEKS AGO
     Route: 048
     Dates: start: 20130510, end: 20130726

REACTIONS (5)
  - Sinus disorder [Not Recovered/Not Resolved]
  - Balance disorder [Unknown]
  - Increased upper airway secretion [Unknown]
  - Somnolence [Unknown]
  - Cognitive disorder [Unknown]
